FAERS Safety Report 8842304 (Version 2)
Quarter: 2012Q4

REPORT INFORMATION
  Report Type: 
  Country: US (occurrence: US)
  Receive Date: 20121016
  Receipt Date: 20121128
  Transmission Date: 20130627
  Serious: No
  Sender: FDA-Public Use
  Company Number: US-PFIZER INC-2012254707

PATIENT
  Age: 32 Year
  Sex: Male
  Weight: 89.8 kg

DRUGS (4)
  1. LYRICA [Suspect]
     Indication: AFFECTIVE DISORDER
     Dosage: 150 mg, 3x/day
     Dates: start: 2005
  2. LYRICA [Suspect]
     Indication: DEPRESSION
  3. ABILIFY [Concomitant]
     Indication: AFFECTIVE DISORDER
     Dosage: UNK
  4. ABILIFY [Concomitant]
     Indication: DEPRESSION

REACTIONS (2)
  - Fibromyalgia [Unknown]
  - Off label use [Unknown]
